FAERS Safety Report 9445166 (Version 2)
Quarter: 2014Q1

REPORT INFORMATION
  Report Type: Spontaneous
  Country: HU (occurrence: HU)
  Receive Date: 20130807
  Receipt Date: 20140212
  Transmission Date: 20141002
  Serious: Yes (Other)
  Sender: FDA-Public Use
  Company Number: HU-UCBSA-093610

PATIENT
  Age: 54 Year
  Sex: Female
  Weight: 62 kg

DRUGS (6)
  1. CIMZIA [Suspect]
     Indication: RHEUMATOID ARTHRITIS
     Dosage: 2X200 MG
     Route: 058
     Dates: start: 20121121, end: 20121219
  2. CIMZIA [Suspect]
     Indication: RHEUMATOID ARTHRITIS
     Route: 058
     Dates: start: 20130102, end: 20130717
  3. TREXAN [Concomitant]
     Indication: RHEUMATOID ARTHRITIS
     Dosage: DOSE PER INTAKE : 17.5 MG
     Route: 048
  4. HUMA-FOLACID [Concomitant]
     Indication: PROPHYLAXIS
     Dosage: TWICE DAILY
  5. DELAGIL [Concomitant]
     Indication: RHEUMATOID ARTHRITIS
  6. CITROCALCIUM [Concomitant]
     Indication: PROPHYLAXIS

REACTIONS (1)
  - Pustular psoriasis [Recovered/Resolved]
